FAERS Safety Report 8273728-3 (Version None)
Quarter: 2012Q2

REPORT INFORMATION
  Report Type: 
  Country: None (occurrence: None)
  Receive Date: 20120411
  Receipt Date: 20120403
  Transmission Date: 20120825
  Serious: Yes (Other)
  Sender: FDA-Public Use
  Company Number: JP-PFIZER INC-2012087213

PATIENT
  Age: 41 Year
  Sex: Male
  Weight: 66 kg

DRUGS (2)
  1. CLARITIN [Concomitant]
     Indication: URTICARIA
     Dosage: 10 MG, QD
     Route: 048
     Dates: start: 20111201
  2. EPIPEN [Suspect]
     Indication: ANAPHYLACTOID REACTION
     Dosage: 0.3 MG DAILY
     Route: 030
     Dates: start: 20111225, end: 20111225

REACTIONS (2)
  - LOSS OF CONSCIOUSNESS [None]
  - HYPERTENSION [None]
